FAERS Safety Report 6409134-3 (Version None)
Quarter: 2009Q4

REPORT INFORMATION
  Report Type: 
  Country: None (occurrence: None)
  Receive Date: 20091021
  Receipt Date: 20091008
  Transmission Date: 20100525
  Serious: Yes (Hospitalization, Other)
  Sender: FDA-Public Use
  Company Number: PHHY2008MX25939

PATIENT
  Sex: Female

DRUGS (5)
  1. DIOVAN [Suspect]
     Indication: HYPERTENSION
     Dosage: 1 TABLET (160 MG) PER DAY
     Route: 048
     Dates: start: 20051105, end: 20080927
  2. DIOVAN [Suspect]
     Dosage: 0.5 TABLET/DAY
     Route: 048
     Dates: start: 20080927, end: 20090927
  3. HUMULIN R [Concomitant]
     Indication: DIABETES MELLITUS
     Dosage: UNK
     Dates: start: 19991023
  4. LASIX [Concomitant]
     Indication: OEDEMA
  5. HYGROTON [Concomitant]
     Indication: OEDEMA

REACTIONS (9)
  - CARDIAC DISORDER [None]
  - DEHYDRATION [None]
  - DIARRHOEA [None]
  - HYPOGLYCAEMIA [None]
  - INFARCTION [None]
  - OEDEMA [None]
  - OEDEMA PERIPHERAL [None]
  - PULMONARY OEDEMA [None]
  - VOMITING [None]
